FAERS Safety Report 24450176 (Version 1)
Quarter: 2024Q4

REPORT INFORMATION
  Report Type: Spontaneous
  Country: US (occurrence: None)
  Receive Date: 20241016
  Receipt Date: 20241016
  Transmission Date: 20250115
  Serious: No
  Sender: Public
  Company Number: None

PATIENT
  Age: 48 Year
  Sex: Female

DRUGS (6)
  1. ENTECAVIR [Suspect]
     Active Substance: ENTECAVIR
     Indication: Immune system disorder
     Dosage: FREQUENCY : DAILY;?
     Route: 048
     Dates: start: 20241001
  2. DIAZEPAM [Concomitant]
     Active Substance: DIAZEPAM
  3. LANTUS [Concomitant]
     Active Substance: INSULIN GLARGINE
  4. iamotrigine [Concomitant]
  5. KEPPRA [Concomitant]
     Active Substance: LEVETIRACETAM
  6. RITUXAN [Concomitant]
     Active Substance: RITUXIMAB

REACTIONS (2)
  - Dizziness [None]
  - Somnolence [None]

NARRATIVE: CASE EVENT DATE: 20241001
